FAERS Safety Report 4462263-6 (Version None)
Quarter: 2004Q3

REPORT INFORMATION
  Report Type: 
  Country: None (occurrence: None)
  Receive Date: 20040929
  Receipt Date: 20040901
  Transmission Date: 20050211
  Serious: Yes (Hospitalization)
  Sender: FDA-Public Use
  Company Number: FR-GLAXOSMITHKLINE-B0343968A

PATIENT
  Age: 85 Year
  Sex: Male
  Weight: 70 kg

DRUGS (5)
  1. DEROXAT [Suspect]
     Indication: DEPRESSION
     Dosage: 20MG PER DAY
     Route: 048
     Dates: start: 20021215
  2. RISPERDAL [Suspect]
     Dosage: 1MG PER DAY
     Route: 048
     Dates: start: 20021215, end: 20040715
  3. DENSICAL [Suspect]
     Dosage: 1UNIT PER DAY
     Route: 048
  4. TRANSIPEG [Suspect]
     Dosage: 2UNIT PER DAY
     Route: 048
  5. TIAPRIDAL [Concomitant]
     Dosage: 5DROP PER DAY
     Route: 048
     Dates: start: 20040715

REACTIONS (5)
  - ANTINUCLEAR ANTIBODY POSITIVE [None]
  - DERMATITIS BULLOUS [None]
  - IMMUNOLOGY TEST ABNORMAL [None]
  - PRURITUS [None]
  - TOXIC SKIN ERUPTION [None]
